FAERS Safety Report 4927761-7 (Version None)
Quarter: 2006Q1

REPORT INFORMATION
  Report Type: 
  Country: None (occurrence: None)
  Receive Date: 20060228
  Receipt Date: 20050427
  Transmission Date: 20060701
  Serious: No
  Sender: FDA-Public Use
  Company Number: US-GLAXOSMITHKLINE-A0556037A

PATIENT
  Age: 41 Year
  Sex: Male

DRUGS (3)
  1. ZIAGEN [Suspect]
     Indication: HIV INFECTION
     Dosage: 300MG TWICE PER DAY
     Route: 048
  2. REYATAZ [Concomitant]
  3. RETROVIR [Concomitant]

REACTIONS (2)
  - FEELING HOT [None]
  - RASH [None]
